FAERS Safety Report 5770993-9 (Version None)
Quarter: 2008Q2

REPORT INFORMATION
  Report Type: 
  Country: None (occurrence: None)
  Receive Date: 20080613
  Receipt Date: 20080522
  Transmission Date: 20081010
  Serious: No
  Sender: FDA-Public Use
  Company Number: US-ABBOTT-08P-163-0453033-00

PATIENT
  Sex: Female
  Weight: 67.646 kg

DRUGS (8)
  1. HUMIRA [Suspect]
     Indication: CROHN'S DISEASE
     Route: 058
     Dates: start: 20070101, end: 20080522
  2. VICODIN [Concomitant]
     Indication: PAIN
     Route: 048
  3. DICYCLOMINE HCL [Concomitant]
     Indication: CROHN'S DISEASE
     Dosage: 20 MG - 3 TABLETS EVERY DAY
     Route: 048
  4. PHENERGAN [Concomitant]
     Indication: CROHN'S DISEASE
     Route: 048
  5. VYTORIN [Concomitant]
     Indication: BLOOD CHOLESTEROL INCREASED
     Route: 048
  6. ASPIRIN [Concomitant]
     Indication: BLOOD CHOLESTEROL INCREASED
     Route: 048
  7. BUPROPION HCL [Concomitant]
     Indication: DEPRESSION
     Route: 048
  8. ZOLPIDEM TARTRATE [Concomitant]
     Indication: SLEEP DISORDER THERAPY
     Route: 048

REACTIONS (1)
  - CELLULITIS [None]
